FAERS Safety Report 9411746 (Version 1)
Quarter: 2013Q3

REPORT INFORMATION
  Report Type: Spontaneous
  Country: US (occurrence: US)
  Receive Date: 20130722
  Receipt Date: 20130722
  Transmission Date: 20140515
  Serious: No
  Sender: FDA-Public Use
  Company Number: US-PFIZER INC-2013213246

PATIENT
  Age: 51 Year
  Sex: Male
  Weight: 142.86 kg

DRUGS (6)
  1. PRISTIQ [Suspect]
     Indication: DEPRESSION
     Dosage: 50 MG, 1X/DAY
     Route: 048
  2. PRISTIQ [Suspect]
     Dosage: 150 MG, 1X/DAY
     Route: 048
  3. BUPROPION SR [Concomitant]
     Dosage: UNK
  4. ATORVASTATIN [Concomitant]
     Dosage: UNK
  5. LISINOPRIL [Concomitant]
     Dosage: UNK
  6. METFORMIN [Concomitant]
     Dosage: UNK

REACTIONS (2)
  - Incorrect dose administered [Unknown]
  - Blood cholesterol increased [Unknown]
